FAERS Safety Report 8083567-4 (Version None)
Quarter: 2012Q1

REPORT INFORMATION
  Report Type: 
  Country: None (occurrence: None)
  Receive Date: 20120127
  Receipt Date: 20110127
  Transmission Date: 20120608
  Serious: No
  Sender: FDA-Public Use
  Company Number: US-ABBOTT-11P-163-0700951-00

PATIENT
  Age: 62 Year
  Sex: Male

DRUGS (15)
  1. CO Q-10 [Concomitant]
     Indication: PRODUCT USED FOR UNKNOWN INDICATION
  2. OXYCONTIN [Concomitant]
     Indication: PAIN
  3. LISINOPRIL [Concomitant]
     Indication: HYPERTENSION
  4. CLONIDINE [Concomitant]
     Indication: HYPERTENSION
  5. XANAX [Concomitant]
     Indication: ILL-DEFINED DISORDER
  6. TEMAZEPAM [Concomitant]
     Indication: PRODUCT USED FOR UNKNOWN INDICATION
  7. TRICOR [Concomitant]
     Indication: BLOOD CHOLESTEROL
  8. WARFARIN SODIUM [Concomitant]
     Indication: ANTICOAGULANT THERAPY
  9. HUMIRA [Suspect]
     Indication: ANKYLOSING SPONDYLITIS
     Dates: start: 20101201
  10. MIRAPEX [Concomitant]
     Indication: RESTLESS LEGS SYNDROME
  11. SIMVASTATIN [Concomitant]
     Indication: BLOOD CHOLESTEROL
  12. WARFARIN SODIUM [Concomitant]
     Indication: ATRIAL FIBRILLATION
  13. CYMBALTA [Concomitant]
     Indication: DEPRESSION
  14. OXYCODONE HCL [Concomitant]
     Indication: PAIN
  15. TOPROL-XL [Concomitant]
     Indication: ATRIAL FIBRILLATION

REACTIONS (1)
  - INJECTION SITE NODULE [None]
